FAERS Safety Report 19363414 (Version 3)
Quarter: 2021Q2

REPORT INFORMATION
  Report Type: Report from Study
  Country: ES (occurrence: ES)
  Receive Date: 20210602
  Receipt Date: 20210611
  Transmission Date: 20210717
  Serious: Yes (Death, Hospitalization)
  Sender: FDA-Public Use
  Company Number: ES-ROCHE-2839524

PATIENT
  Age: 76 Year
  Sex: Male
  Weight: 52.5 kg

DRUGS (12)
  1. ESCOPOLAMINA [Concomitant]
     Indication: DIARRHOEA
     Route: 048
     Dates: start: 20210325
  2. PLACEBO [Suspect]
     Active Substance: UNSPECIFIED INGREDIENT
     Indication: NON-SMALL CELL LUNG CANCER
     Dosage: MOST RECENT DOSE RECEIVED ON 30/APR/2021 PRIOR TO SERIOUS ADVERSE EVENT.
     Route: 042
     Dates: start: 20210409
  3. ATEZOLIZUMAB. [Suspect]
     Active Substance: ATEZOLIZUMAB
     Indication: NON-SMALL CELL LUNG CANCER
     Dosage: MOST RECENT DOSE (1200 MG) RECEIVED ON 30/APR/2021 PRIOR TO SERIOUS ADVERSE EVENT.
     Route: 042
     Dates: start: 20210409
  4. FOLIC ACID. [Concomitant]
     Active Substance: FOLIC ACID
     Indication: ANAEMIA
     Route: 048
  5. ATORVASTATINA [Concomitant]
     Active Substance: ATORVASTATIN
     Indication: DYSLIPIDAEMIA
     Route: 048
  6. COLESTIRAMINA [Concomitant]
     Active Substance: CHOLESTYRAMINE
     Indication: DYSLIPIDAEMIA
     Route: 048
  7. PENTOXIFILINA [Concomitant]
     Active Substance: PENTOXIFYLLINE
     Indication: PERIPHERAL ARTERIAL OCCLUSIVE DISEASE
     Route: 048
  8. TARDYFERON [Concomitant]
     Active Substance: FERROUS SULFATE
     Indication: ANAEMIA
     Route: 048
  9. SALVACOLINA [Concomitant]
     Indication: DIARRHOEA
     Route: 048
     Dates: start: 20210325
  10. VELMETIA [Concomitant]
     Active Substance: METFORMIN\SITAGLIPTIN
     Indication: TYPE 2 DIABETES MELLITUS
     Route: 048
  11. APIXABAN [Concomitant]
     Active Substance: APIXABAN
     Indication: ATRIAL FIBRILLATION
     Route: 048
  12. OMEPRAZOLE. [Concomitant]
     Active Substance: OMEPRAZOLE
     Route: 048

REACTIONS (1)
  - Cardiac failure [Fatal]

NARRATIVE: CASE EVENT DATE: 20210521
